FAERS Safety Report 11689747 (Version 1)
Quarter: 2015Q4

REPORT INFORMATION
  Report Type: Spontaneous
  Country: None (occurrence: None)
  Receive Date: 20151030
  Receipt Date: 20151030
  Transmission Date: 20160304
  Serious: Yes (Hospitalization)
  Sender: FDA-Public Use
  Company Number: None

PATIENT
  Age: 42 Year
  Sex: Male
  Weight: 89.6 kg

DRUGS (3)
  1. DIVALPROEX ER 500 MG [Suspect]
     Active Substance: DIVALPROEX SODIUM
     Indication: AFFECTIVE DISORDER
     Dosage: 1 PILL
     Route: 048
     Dates: start: 20150814, end: 20150829
  2. CLONAZEPAM 1MG [Suspect]
     Active Substance: CLONAZEPAM
     Indication: ANXIETY
     Dosage: 1 PILL
     Route: 048
     Dates: start: 20150810, end: 20150822
  3. CLONAZEPAM. [Concomitant]
     Active Substance: CLONAZEPAM

REACTIONS (4)
  - Toxicity to various agents [None]
  - Mental status changes [None]
  - Movement disorder [None]
  - Somnolence [None]

NARRATIVE: CASE EVENT DATE: 20150823
